FAERS Safety Report 11184322 (Version 1)
Quarter: 2015Q2

REPORT INFORMATION
  Report Type: Spontaneous
  Country: IT (occurrence: None)
  Receive Date: 20150610
  Receipt Date: 20150610
  Transmission Date: 20150821
  Serious: Yes (Other)
  Sender: FDA-Public Use
  Company Number: 2015HINLIT0476

PATIENT
  Age: 54 Year
  Sex: Male

DRUGS (3)
  1. ESCITALOPRAM [Suspect]
     Active Substance: ESCITALOPRAM OXALATE
     Indication: BIPOLAR II DISORDER
  2. VALPROATE [Concomitant]
     Active Substance: VALPROIC ACID
  3. LITHIUM. [Suspect]
     Active Substance: LITHIUM
     Indication: BIPOLAR DISORDER

REACTIONS (3)
  - Tongue biting [None]
  - Hypomania [None]
  - Bruxism [None]
